FAERS Safety Report 6431678-9 (Version None)
Quarter: 2009Q4

REPORT INFORMATION
  Report Type: 
  Country: None (occurrence: None)
  Receive Date: 20091103
  Receipt Date: 20091022
  Transmission Date: 20100525
  Serious: Yes (Other)
  Sender: FDA-Public Use
  Company Number: 2007AL005279

PATIENT
  Age: 56 Year
  Sex: Female
  Weight: 71 kg

DRUGS (8)
  1. GABAPENTIN [Suspect]
     Indication: NEURALGIA
     Dosage: 2700 MG, BID;
     Dates: start: 20070727
  2. CITALOPRAM HYDROBROMIDE [Suspect]
     Dosage: 20 MG, QD;
  3. PREGABALIN [Concomitant]
  4. BISACODYL [Concomitant]
  5. VITAMINS NOS [Concomitant]
  6. COD-LIVER OIL [Concomitant]
  7. GLUCOSAMINE [Concomitant]
  8. LIDOCAINE [Concomitant]

REACTIONS (33)
  - ACTIVITIES OF DAILY LIVING IMPAIRED [None]
  - AMNESIA [None]
  - ANAL SPHINCTER ATONY [None]
  - ANORGASMIA [None]
  - ARTHRALGIA [None]
  - ATONIC URINARY BLADDER [None]
  - BODY DYSMORPHIC DISORDER [None]
  - BRADYCARDIA [None]
  - COGNITIVE DISORDER [None]
  - CONSTIPATION [None]
  - DIARRHOEA [None]
  - DISTURBANCE IN ATTENTION [None]
  - DRUG INTERACTION [None]
  - DRY EYE [None]
  - FLATULENCE [None]
  - GINGIVAL SWELLING [None]
  - HEADACHE [None]
  - HYPOTENSION [None]
  - INCONTINENCE [None]
  - JOINT SWELLING [None]
  - LIBIDO DECREASED [None]
  - MUCOUS MEMBRANE DISORDER [None]
  - MYALGIA [None]
  - OEDEMA [None]
  - PAIN [None]
  - POLLAKIURIA [None]
  - QUALITY OF LIFE DECREASED [None]
  - SENSATION OF HEAVINESS [None]
  - TENDERNESS [None]
  - TOOTH DISORDER [None]
  - UNEVALUABLE EVENT [None]
  - URINARY RETENTION [None]
  - WEIGHT INCREASED [None]
